FAERS Safety Report 9259324 (Version 1)
Quarter: 2013Q2

REPORT INFORMATION
  Report Type: Report from Study
  Country: DE (occurrence: DE)
  Receive Date: 20130427
  Receipt Date: 20130427
  Transmission Date: 20140414
  Serious: Yes (Death)
  Sender: FDA-Public Use
  Company Number: DE-ROCHE-1218845

PATIENT
  Age: 64 Year
  Sex: Male

DRUGS (8)
  1. TRETINOIN [Suspect]
     Indication: ACUTE PROMYELOCYTIC LEUKAEMIA
     Route: 065
  2. CYTARABINE [Suspect]
     Indication: ACUTE PROMYELOCYTIC LEUKAEMIA
     Dosage: CONTINOUS I.V. DAY 1 AND 2
     Route: 042
  3. CYTARABINE [Suspect]
     Dosage: DAY 3 TO 8
     Route: 042
  4. CYTARABINE [Suspect]
     Dosage: CONSOLIDATION THERAPY WITH ONE CYCLE
     Route: 042
  5. 6-THIOGUANINE [Suspect]
     Indication: ACUTE PROMYELOCYTIC LEUKAEMIA
     Dosage: DAY 3 TO 9
     Route: 048
  6. 6-THIOGUANINE [Suspect]
     Dosage: CONSOLIDATION THERAPY WITH ONE CYCLE
     Route: 048
  7. DAUNORUBICIN [Suspect]
     Indication: ACUTE PROMYELOCYTIC LEUKAEMIA
     Dosage: DAY 3 TO 5
     Route: 042
  8. DAUNORUBICIN [Suspect]
     Dosage: CONSOLIDATION THERAPY WITH ONE CYCLE
     Route: 042

REACTIONS (1)
  - Sepsis [Fatal]
